FAERS Safety Report 9451094 (Version 1)
Quarter: 2013Q3

REPORT INFORMATION
  Report Type: Spontaneous
  Country: DE (occurrence: DE)
  Receive Date: 20130809
  Receipt Date: 20130809
  Transmission Date: 20140515
  Serious: Yes (Other)
  Sender: FDA-Public Use
  Company Number: DE-GILEAD-2013-0080116

PATIENT
  Age: 48 Year
  Sex: Male

DRUGS (5)
  1. TENOFOVIR DISOPROXIL FUMARATE [Suspect]
     Indication: HIV INFECTION
     Dosage: UNK
     Dates: start: 2004, end: 2008
  2. TENOFOVIR DISOPROXIL FUMARATE [Suspect]
     Dosage: UNK
     Dates: start: 2003, end: 2003
  3. EMTRIVA [Suspect]
     Indication: HIV INFECTION
     Dosage: UNK
     Dates: start: 2006, end: 2008
  4. SAQUINAVIR [Concomitant]
     Indication: HIV INFECTION
     Dosage: UNK
     Dates: start: 2006, end: 2008
  5. RITONAVIR [Concomitant]
     Indication: HIV INFECTION
     Dosage: UNK
     Dates: start: 2005, end: 2008

REACTIONS (2)
  - Viral mutation identified [Unknown]
  - Viral mutation identified [Unknown]
